FAERS Safety Report 6756885-7 (Version None)
Quarter: 2010Q2

REPORT INFORMATION
  Report Type: 
  Country: None (occurrence: None)
  Receive Date: 20100524
  Receipt Date: 20100218
  Transmission Date: 20101027
  Serious: No
  Sender: FDA-Public Use
  Company Number: 006966

PATIENT
  Sex: Female
  Weight: 56.8 kg

DRUGS (9)
  1. CIMZIA [Suspect]
     Indication: CROHN'S DISEASE
     Dosage: (400 MG SUBCUTANEOUS)
     Route: 058
     Dates: start: 20091201
  2. FOXAMAX [Concomitant]
  3. COLESTID [Concomitant]
  4. VITAMIN B-12 [Concomitant]
  5. MULTI-VITAMINS [Concomitant]
  6. CALCIUM CARBONATE [Concomitant]
  7. NASONEX [Concomitant]
  8. VITAMIN D [Concomitant]
  9. VITAMIN C /00008001/ [Concomitant]

REACTIONS (3)
  - ACTIVITIES OF DAILY LIVING IMPAIRED [None]
  - ANAESTHESIA [None]
  - HYPOAESTHESIA [None]
